FAERS Safety Report 7134942-3 (Version None)
Quarter: 2010Q4

REPORT INFORMATION
  Report Type: 
  Country: None (occurrence: None)
  Receive Date: 20101203
  Receipt Date: 20101119
  Transmission Date: 20110411
  Serious: Yes (Hospitalization)
  Sender: FDA-Public Use
  Company Number: US-ELI_LILLY_AND_COMPANY-US201011006073

PATIENT
  Sex: Female

DRUGS (4)
  1. FORTEO [Suspect]
     Indication: OSTEOPOROSIS
     Dosage: 20 UG, DAILY (1/D)
     Dates: start: 20100101
  2. FISH OIL [Concomitant]
  3. ASPIRIN [Concomitant]
  4. CALCIUM WITH VITAMIN D [Concomitant]

REACTIONS (1)
  - ANKLE FRACTURE [None]
